FAERS Safety Report 4300505-8 (Version None)
Quarter: 2004Q1

REPORT INFORMATION
  Report Type: 
  Country: None (occurrence: None)
  Receive Date: 20040213
  Receipt Date: 20040209
  Transmission Date: 20041129
  Serious: Yes (Hospitalization)
  Sender: FDA-Public Use
  Company Number: US066003

PATIENT
  Age: 58 Year
  Sex: Female

DRUGS (3)
  1. NEUPOGEN [Suspect]
     Indication: CHEMOTHERAPY
     Dosage: 300 MCG, 1 IN 1 DAYS
     Dates: start: 20030101
  2. SINEMET [Concomitant]
  3. DOXORUBICIN HCL [Concomitant]

REACTIONS (3)
  - INTESTINAL OBSTRUCTION [None]
  - OEDEMA PERIPHERAL [None]
  - RASH [None]
